FAERS Safety Report 6774826-3 (Version None)
Quarter: 2010Q2

REPORT INFORMATION
  Report Type: 
  Country: None (occurrence: None)
  Receive Date: 20100616
  Receipt Date: 20100616
  Transmission Date: 20101027
  Serious: No
  Sender: FDA-Public Use
  Company Number: None

PATIENT
  Age: 79 Year
  Sex: Female

DRUGS (1)
  1. DILAUDID [Suspect]
     Indication: PAIN
     Dosage: 0.4MG X4 DOSES IV BOLUSES
     Route: 040
     Dates: start: 20100429, end: 20100429

REACTIONS (1)
  - SOMNOLENCE [None]
